FAERS Safety Report 9103418 (Version 1)
Quarter: 2013Q1

REPORT INFORMATION
  Report Type: Spontaneous
  Country: US (occurrence: US)
  Receive Date: 20130219
  Receipt Date: 20130219
  Transmission Date: 20140127
  Serious: No
  Sender: FDA-Public Use
  Company Number: US-PFIZER INC-2013056193

PATIENT
  Sex: Male

DRUGS (1)
  1. PROTONIX [Suspect]
     Dosage: 40 MG, UNK
     Dates: start: 201211

REACTIONS (2)
  - Dry skin [Unknown]
  - Nasal dryness [Unknown]
